FAERS Safety Report 10229113 (Version 1)
Quarter: 2014Q2

REPORT INFORMATION
  Report Type: Spontaneous
  Country: US (occurrence: US)
  Receive Date: 20140611
  Receipt Date: 20140611
  Transmission Date: 20141212
  Serious: Yes (Death, Hospitalization)
  Sender: FDA-Public Use
  Company Number: PHHY2014US067613

PATIENT
  Age: 19 Year
  Sex: Male

DRUGS (1)
  1. METFORMIN [Suspect]
     Dosage: 240 DF, UNK

REACTIONS (9)
  - Death [Fatal]
  - Leukaemoid reaction [Unknown]
  - White blood cell count increased [Unknown]
  - Bandaemia [Unknown]
  - Retching [Unknown]
  - Heart rate increased [Unknown]
  - General physical health deterioration [Unknown]
  - Blood lactic acid increased [Unknown]
  - Overdose [Unknown]
